FAERS Safety Report 10047714 (Version 1)
Quarter: 2014Q1

REPORT INFORMATION
  Report Type: Spontaneous
  Country: US (occurrence: None)
  Receive Date: 20140328
  Receipt Date: 20140328
  Transmission Date: 20141002
  Serious: Yes (Other)
  Sender: FDA-Public Use
  Company Number: None

PATIENT
  Age: 44 Year
  Sex: Female
  Weight: 65.3 kg

DRUGS (1)
  1. PHYTONADIONE [Suspect]
     Indication: INTERNATIONAL NORMALISED RATIO INCREASED
     Route: 042
     Dates: start: 20131203

REACTIONS (5)
  - Infusion related reaction [None]
  - Dyspnoea [None]
  - Neck pain [None]
  - Hyperhidrosis [None]
  - Hypoxia [None]
